FAERS Safety Report 8204998-5 (Version None)
Quarter: 2012Q1

REPORT INFORMATION
  Report Type: 
  Country: None (occurrence: None)
  Receive Date: 20120313
  Receipt Date: 20120305
  Transmission Date: 20120608
  Serious: Yes (Other)
  Sender: FDA-Public Use
  Company Number: GB-B.I. PHARMACEUTICALS,INC./RIDGEFIELD-2012-UK-00012UK

PATIENT
  Sex: Female

DRUGS (11)
  1. SPIRIVA [Suspect]
     Indication: ASTHMA
     Dosage: 18 MCG
     Route: 055
     Dates: end: 20120201
  2. ATORVASTATIN [Concomitant]
     Dosage: 40 MG
     Route: 048
  3. FLUTICASONE PROPIONATE [Concomitant]
  4. VENTOLIN [Concomitant]
     Dosage: 100 MCG
     Route: 055
  5. FLUTICASONE PROPIONATE/SALMETEROL [Concomitant]
     Dosage: 2 ANZ
     Route: 048
  6. CLOPIDOGREL [Concomitant]
     Dosage: 75 MG
     Route: 048
  7. CALCIUM CARBONATE [Concomitant]
     Dosage: 2 ANZ
  8. FUROSEMIDE [Concomitant]
     Dosage: 20 MG
  9. LORATADINE [Concomitant]
     Dosage: 10 MG
     Route: 048
  10. DICLOFENAC SODIUM [Concomitant]
     Dosage: 150 MG
  11. ALLOPURINOL [Concomitant]
     Dosage: 300 MG
     Route: 048

REACTIONS (2)
  - INCREASED UPPER AIRWAY SECRETION [None]
  - SPUTUM INCREASED [None]
